FAERS Safety Report 7794928-2 (Version None)
Quarter: 2011Q4

REPORT INFORMATION
  Report Type: 
  Country: None (occurrence: None)
  Receive Date: 20111004
  Receipt Date: 20110923
  Transmission Date: 20120403
  Serious: Yes (Life-Threatening, Hospitalization, Other)
  Sender: FDA-Public Use
  Company Number: DE-PFIZER INC-2011234880

PATIENT
  Age: 83 Year
  Sex: Female
  Weight: 70 kg

DRUGS (3)
  1. PANTOPRAZOLE [Suspect]
     Dosage: 40 TO 80 MG DAILY
     Route: 048
     Dates: start: 20110622, end: 20110809
  2. NOVALGIN [Suspect]
     Dosage: 30 DROPS ONCE OR 3 TIMES DAILY
     Route: 048
     Dates: start: 20110724, end: 20110805
  3. ALDACTONE [Suspect]
     Dosage: 25 MG, 1X/DAY
     Route: 048
     Dates: start: 20110701, end: 20110806

REACTIONS (1)
  - RENAL FAILURE ACUTE [None]
